FAERS Safety Report 24040839 (Version 2)
Quarter: 2024Q3

REPORT INFORMATION
  Report Type: Spontaneous
  Country: US (occurrence: US)
  Receive Date: 20240702
  Receipt Date: 20240702
  Transmission Date: 20241017
  Serious: Yes (Other)
  Sender: GILEAD
  Company Number: US-GILEAD-2024-0679025

PATIENT
  Sex: Female

DRUGS (1)
  1. CAYSTON [Suspect]
     Active Substance: AZTREONAM
     Indication: Product used for unknown indication
     Dosage: 75 MG
     Route: 065

REACTIONS (4)
  - Neuropathy peripheral [Unknown]
  - Onychoclasis [Unknown]
  - Frustration tolerance decreased [Unknown]
  - Product packaging difficult to open [Unknown]
